FAERS Safety Report 7210586-X (Version None)
Quarter: 2011Q1

REPORT INFORMATION
  Report Type: 
  Country: None (occurrence: None)
  Receive Date: 20110105
  Receipt Date: 20101228
  Transmission Date: 20110831
  Serious: Yes (Other)
  Sender: FDA-Public Use
  Company Number: PHHY2010ZA88593

PATIENT
  Sex: Male

DRUGS (5)
  1. ELTROXIN [Concomitant]
     Dosage: 0.1 MG DAILY
     Dates: start: 19700101
  2. PARLODEL [Suspect]
     Indication: PITUITARY TUMOUR BENIGN
     Dosage: UNK
     Route: 048
     Dates: start: 19860101
  3. ATERAX [Interacting]
     Dosage: 100 MG (TWICE)
  4. PANAFCORT [Concomitant]
     Dosage: 5 MG
  5. GAVISCON [Concomitant]
     Dosage: PRN

REACTIONS (7)
  - MALAISE [None]
  - DRUG INTERACTION [None]
  - ABNORMAL BEHAVIOUR [None]
  - AGITATION [None]
  - ECZEMA [None]
  - THERMAL BURN [None]
  - APHASIA [None]
